FAERS Safety Report 7195232-6 (Version None)
Quarter: 2010Q4

REPORT INFORMATION
  Report Type: 
  Country: None (occurrence: None)
  Receive Date: 20101223
  Receipt Date: 20100928
  Transmission Date: 20110411
  Serious: No
  Sender: FDA-Public Use
  Company Number: US-AMGEN-KDL441446

PATIENT

DRUGS (4)
  1. ENBREL [Suspect]
     Indication: RHEUMATOID ARTHRITIS
     Dosage: 50 MG, UNK
     Dates: start: 20100701
  2. SIMVASTATIN [Concomitant]
     Dosage: 40 MG, UNK
  3. MEDROXYPROGESTERONE ACETATE [Concomitant]
     Dosage: UNK UNK, UNK
  4. TRAMADOL [Concomitant]
     Dosage: 50 MG, UNK

REACTIONS (2)
  - FLUID RETENTION [None]
  - WEIGHT INCREASED [None]
